FAERS Safety Report 9679132 (Version 2)
Quarter: 2013Q4

REPORT INFORMATION
  Report Type: Spontaneous
  Country: US (occurrence: US)
  Receive Date: 20131108
  Receipt Date: 20131114
  Transmission Date: 20140711
  Serious: Yes (Other)
  Sender: FDA-Public Use
  Company Number: CHPA2013US016883

PATIENT
  Sex: Female

DRUGS (4)
  1. VOLTAREN GEL [Suspect]
     Indication: MENISCUS INJURY
     Dosage: 4 G, ONCE/SINGLE
     Route: 061
     Dates: start: 201304
  2. VOLTAREN GEL [Suspect]
     Indication: OFF LABEL USE
     Dosage: UNK, UNK
     Route: 061
     Dates: start: 20131105
  3. VOLTAREN GEL [Suspect]
     Indication: ARTHRALGIA
  4. NEXIUM//ESOMEPRAZOLE MAGNESIUM [Concomitant]
     Indication: GASTROOESOPHAGEAL REFLUX DISEASE
     Dosage: UNK, UNK

REACTIONS (8)
  - Meniscus injury [Recovered/Resolved]
  - Synovial cyst [Not Recovered/Not Resolved]
  - Bone cyst [Not Recovered/Not Resolved]
  - Abasia [Recovering/Resolving]
  - Abdominal discomfort [Recovered/Resolved]
  - Therapeutic response delayed [Unknown]
  - Expired drug administered [Unknown]
  - Drug ineffective for unapproved indication [Unknown]
